FAERS Safety Report 7390665-7 (Version None)
Quarter: 2011Q2

REPORT INFORMATION
  Report Type: 
  Country: None (occurrence: None)
  Receive Date: 20110404
  Receipt Date: 20110324
  Transmission Date: 20111010
  Serious: No
  Sender: FDA-Public Use
  Company Number: US-BIOGENIDEC-2010BI044449

PATIENT
  Sex: Female

DRUGS (3)
  1. AVONEX [Concomitant]
     Indication: MULTIPLE SCLEROSIS
     Route: 030
     Dates: start: 20010101
  2. TYSABRI [Suspect]
     Indication: MULTIPLE SCLEROSIS
     Route: 042
     Dates: start: 20080421
  3. AVONEX [Concomitant]
     Route: 030
     Dates: start: 20001003

REACTIONS (7)
  - BURNING SENSATION [None]
  - FRUSTRATION [None]
  - MULTIPLE SCLEROSIS [None]
  - BACK PAIN [None]
  - NECK MASS [None]
  - MEMORY IMPAIRMENT [None]
  - TREMOR [None]
